FAERS Safety Report 5743738-6 (Version None)
Quarter: 2008Q2

REPORT INFORMATION
  Report Type: 
  Country: None (occurrence: None)
  Receive Date: 20080516
  Receipt Date: 20080506
  Transmission Date: 20081010
  Serious: Yes (Hospitalization)
  Sender: FDA-Public Use
  Company Number: ADE2008-0193

PATIENT
  Age: 86 Year
  Sex: Male

DRUGS (9)
  1. ATENOLOL [Suspect]
  2. ACETYLSALICYLIC ACID SRT [Suspect]
  3. AQUEOUS CREAM WITH MENTHOL [Suspect]
  4. BENDROFLUMETHIAZIDE [Suspect]
  5. CHLORPHENIRAMINE MALEATE [Suspect]
  6. DIGOXIN [Suspect]
  7. LACTULOSE [Suspect]
     Dosage: 10 MG - BID- PO
     Route: 048
  8. PREDNISOLONE [Suspect]
  9. URSODEOXYCHLIC ACID [Suspect]

REACTIONS (1)
  - JAUNDICE [None]
